FAERS Safety Report 7530745-6 (Version None)
Quarter: 2011Q2

REPORT INFORMATION
  Report Type: 
  Country: None (occurrence: None)
  Receive Date: 20110607
  Receipt Date: 20110603
  Transmission Date: 20111010
  Serious: Yes (Life-Threatening, Hospitalization)
  Sender: FDA-Public Use
  Company Number: JP-ABBOTT-11P-087-0702405-00

PATIENT
  Sex: Female
  Weight: 46 kg

DRUGS (3)
  1. PREDNISOLONE [Concomitant]
     Indication: RHEUMATOID ARTHRITIS
     Route: 048
     Dates: start: 20100624
  2. METHOTREXATE [Concomitant]
     Indication: RHEUMATOID ARTHRITIS
     Dosage: ADM. IN DIVIDED DOSE 4MG, 2MG AND 2MG/W
     Route: 048
     Dates: start: 20100624
  3. HUMIRA [Suspect]
     Indication: RHEUMATOID ARTHRITIS
     Route: 058
     Dates: start: 20100927, end: 20110119

REACTIONS (3)
  - DISSEMINATED TUBERCULOSIS [None]
  - GASTRIC ULCER [None]
  - DECREASED APPETITE [None]
